FAERS Safety Report 4590519-5 (Version None)
Quarter: 2005Q1

REPORT INFORMATION
  Report Type: 
  Country: None (occurrence: None)
  Receive Date: 20050224
  Receipt Date: 20041116
  Transmission Date: 20050727
  Serious: Yes (Hospitalization)
  Sender: FDA-Public Use
  Company Number: US-ROCHE-386528

PATIENT
  Age: 45 Year
  Sex: Female
  Weight: 74.4 kg

DRUGS (10)
  1. PEG-INTERFERON ALFA 2A (RO 25-8310) [Suspect]
     Route: 058
     Dates: start: 20040701
  2. RIBAVIRIN [Suspect]
     Route: 048
     Dates: start: 20040701, end: 20041020
  3. RIBAVIRIN [Suspect]
     Dosage: DUE TO DECREASED HEMOGLOBIN
     Route: 048
     Dates: start: 20041021, end: 20041111
  4. RIBAVIRIN [Suspect]
     Dosage: AFTER INTERRUPTION, PATIENT FORGOT TO TAKE DOSE ON 13 NOV 2004.
     Route: 048
     Dates: start: 20041114
  5. TYLENOL (CAPLET) [Concomitant]
     Dosage: DOSE REPORTED AS 1000.
     Dates: start: 19940615
  6. VITAMIN E [Concomitant]
     Dates: start: 20040621
  7. VITAMIN C [Concomitant]
     Dates: start: 20040621
  8. VITAMIN A [Concomitant]
     Dates: start: 20040621
  9. ESCITALOPRAM OXALATE [Concomitant]
     Dates: start: 20040824
  10. IRON GLUCONATE [Concomitant]
     Dates: start: 20041022, end: 20041111

REACTIONS (5)
  - HAEMOGLOBIN DECREASED [None]
  - HYSTERECTOMY [None]
  - MENORRHAGIA [None]
  - PAIN [None]
  - TREATMENT NONCOMPLIANCE [None]
